FAERS Safety Report 8254933-9 (Version None)
Quarter: 2012Q2

REPORT INFORMATION
  Report Type: 
  Country: None (occurrence: None)
  Receive Date: 20120403
  Receipt Date: 20120327
  Transmission Date: 20120825
  Serious: No
  Sender: FDA-Public Use
  Company Number: US-PFIZER INC-2012079460

PATIENT
  Sex: Female
  Weight: 122 kg

DRUGS (2)
  1. PREDNISONE [Concomitant]
     Indication: PLATELET COUNT ABNORMAL
     Dosage: UNK
  2. DETROL LA [Suspect]
     Indication: URINARY INCONTINENCE
     Dosage: 2 MG, DAILY
     Dates: start: 20120301

REACTIONS (1)
  - DRUG INEFFECTIVE [None]
